FAERS Safety Report 6231452-2 (Version None)
Quarter: 2009Q2

REPORT INFORMATION
  Report Type: 
  Country: None (occurrence: None)
  Receive Date: 20090612
  Receipt Date: 20090612
  Transmission Date: 20091009
  Serious: Yes (Other)
  Sender: FDA-Public Use
  Company Number: None

PATIENT
  Age: 28 Year
  Sex: Female
  Weight: 136.0791 kg

DRUGS (3)
  1. HEPARIN [Suspect]
     Indication: ANTIPHOSPHOLIPID SYNDROME
     Dosage: 5000 USP UNITS 7 MG 2 X DAILY SQ
     Dates: start: 20070420, end: 20080110
  2. HEPARIN [Suspect]
     Indication: PLACENTAL DISORDER
     Dosage: 5000 USP UNITS 7 MG 2 X DAILY SQ
     Dates: start: 20070420, end: 20080110
  3. HEPARIN [Suspect]
     Indication: THROMBOSIS
     Dosage: 5000 USP UNITS 7 MG 2 X DAILY SQ
     Dates: start: 20070420, end: 20080110

REACTIONS (6)
  - ABDOMINAL PAIN UPPER [None]
  - DIARRHOEA [None]
  - MALAISE [None]
  - MIGRAINE [None]
  - NAUSEA [None]
  - VOMITING [None]
